FAERS Safety Report 4440115-5 (Version None)
Quarter: 2004Q3

REPORT INFORMATION
  Report Type: 
  Country: None (occurrence: None)
  Receive Date: 20040831
  Receipt Date: 20040630
  Transmission Date: 20050211
  Serious: Yes (Hospitalization)
  Sender: FDA-Public Use
  Company Number: 701879

PATIENT
  Age: 37 Year
  Sex: Male
  Weight: 81.6475 kg

DRUGS (1)
  1. AMEVIVE [Suspect]
     Indication: PSORIASIS
     Dosage: 15 MG QW IM
     Route: 030
     Dates: start: 20040101, end: 20040401

REACTIONS (3)
  - ANKLE OPERATION [None]
  - POSTOPERATIVE INFECTION [None]
  - PSORIASIS [None]
